FAERS Safety Report 6867396-2 (Version None)
Quarter: 2010Q3

REPORT INFORMATION
  Report Type: 
  Country: None (occurrence: None)
  Receive Date: 20100722
  Receipt Date: 20100720
  Transmission Date: 20110219
  Serious: Yes (Hospitalization, Other)
  Sender: FDA-Public Use
  Company Number: IT-BRISTOL-MYERS SQUIBB COMPANY-15199797

PATIENT
  Age: 78 Year
  Sex: Female

DRUGS (6)
  1. COUMADIN [Suspect]
     Indication: PROPHYLAXIS
     Route: 048
     Dates: start: 20080401, end: 20090630
  2. FENOFIBRATE [Suspect]
     Indication: DYSLIPIDAEMIA
     Route: 048
  3. DILTIAZEM HCL [Concomitant]
     Indication: HYPERTENSION
     Dosage: 200 MG LONG RELEASE CAPS
     Route: 048
     Dates: start: 20100401
  4. NEO-LOTAN [Concomitant]
     Indication: HYPERTENSION
     Dosage: 50 MG TABS
     Route: 048
  5. TORADIUR [Concomitant]
     Indication: HYPERTENSION
     Dosage: 10 MG TABS
     Route: 048
  6. EUTIROX [Concomitant]
     Indication: HYPOTHYROIDISM
     Dosage: 25 MCG TABS
     Route: 048

REACTIONS (7)
  - ANAEMIA [None]
  - DRUG INTERACTION [None]
  - HAEMATOCHEZIA [None]
  - INTERNATIONAL NORMALISED RATIO INCREASED [None]
  - MELAENA [None]
  - RENAL IMPAIRMENT [None]
  - SUBCUTANEOUS HAEMATOMA [None]
